FAERS Safety Report 17199948 (Version 1)
Quarter: 2019Q4

REPORT INFORMATION
  Report Type: Spontaneous
  Country: US (occurrence: US)
  Receive Date: 20191226
  Receipt Date: 20191226
  Transmission Date: 20200122
  Serious: No
  Sender: FDA-Public Use
  Company Number: US-009507513-1912USA008094

PATIENT
  Age: 81 Year
  Sex: Male

DRUGS (2)
  1. DYMISTA [Concomitant]
     Active Substance: AZELASTINE HYDROCHLORIDE\FLUTICASONE PROPIONATE
  2. SINEMET [Suspect]
     Active Substance: CARBIDOPA\LEVODOPA
     Route: 048

REACTIONS (5)
  - Dizziness [Unknown]
  - Blood glucose decreased [Unknown]
  - Nasal congestion [Unknown]
  - Dyspnoea [Unknown]
  - Parkinsonism [Unknown]
